FAERS Safety Report 13558793 (Version 1)
Quarter: 2017Q2

REPORT INFORMATION
  Report Type: Spontaneous
  Country: IT (occurrence: IT)
  Receive Date: 20170518
  Receipt Date: 20170518
  Transmission Date: 20170830
  Serious: Yes (Hospitalization, Other)
  Sender: FDA-Public Use
  Company Number: IT-MYLANLABS-2017M1028981

PATIENT

DRUGS (1)
  1. PAROXETINE. [Suspect]
     Active Substance: PAROXETINE
     Indication: PRODUCT USED FOR UNKNOWN INDICATION
     Dosage: 20MG
     Route: 065

REACTIONS (10)
  - Wrong drug administered [Recovering/Resolving]
  - Generalised tonic-clonic seizure [Recovered/Resolved]
  - Unresponsive to stimuli [Recovering/Resolving]
  - Salivary hypersecretion [Recovering/Resolving]
  - Cyanosis [Recovering/Resolving]
  - Accidental overdose [Recovering/Resolving]
  - Somnolence [Recovering/Resolving]
  - Mydriasis [Recovering/Resolving]
  - Toxicity to various agents [Recovering/Resolving]
  - Dyspnoea [Recovering/Resolving]
